FAERS Safety Report 5316654-1 (Version None)
Quarter: 2007Q2

REPORT INFORMATION
  Report Type: 
  Country: None (occurrence: None)
  Receive Date: 20070504
  Receipt Date: 20070423
  Transmission Date: 20071010
  Serious: Yes (Hospitalization)
  Sender: FDA-Public Use
  Company Number: HQWYE790624APR07

PATIENT
  Sex: Female

DRUGS (1)
  1. EFFEXOR [Suspect]
     Indication: DEPRESSION
     Dosage: 150 MG 3 TIMES PER DAY ( OVERDOSE AMOUNT)
     Route: 048
     Dates: start: 20070312, end: 20070320

REACTIONS (4)
  - ACCIDENTAL OVERDOSE [None]
  - HEAD DISCOMFORT [None]
  - INCORRECT DOSE ADMINISTERED [None]
  - NAUSEA [None]
